FAERS Safety Report 5569328-6 (Version None)
Quarter: 2007Q4

REPORT INFORMATION
  Report Type: 
  Country: None (occurrence: None)
  Receive Date: 20071220
  Receipt Date: 20071026
  Transmission Date: 20080405
  Serious: No
  Sender: FDA-Public Use
  Company Number: A0690073A

PATIENT
  Age: 78 Year
  Sex: Male

DRUGS (12)
  1. AVODART [Suspect]
     Indication: BENIGN PROSTATIC HYPERPLASIA
     Dosage: .5MG PER DAY
     Route: 048
     Dates: start: 20070906
  2. COREG CR [Suspect]
     Indication: HYPERTENSION
     Dosage: 10MG PER DAY
     Route: 048
     Dates: start: 20070521
  3. VESICARE [Suspect]
     Dosage: 10MG PER DAY
     Route: 048
     Dates: start: 20070619
  4. ZESTORETIC [Concomitant]
  5. GLYBURIDE [Concomitant]
  6. VYTORIN [Concomitant]
  7. FLOMAX [Concomitant]
  8. ASPIRIN [Concomitant]
  9. ALLOPURINOL [Concomitant]
  10. SENNA [Concomitant]
  11. GINKOBA [Concomitant]
  12. ACTOS [Concomitant]

REACTIONS (3)
  - ASTHENIA [None]
  - CONSTIPATION [None]
  - DRY MOUTH [None]
